FAERS Safety Report 7306745-8 (Version None)
Quarter: 2011Q1

REPORT INFORMATION
  Report Type: 
  Country: None (occurrence: None)
  Receive Date: 20110222
  Receipt Date: 20110221
  Transmission Date: 20110831
  Serious: Yes (Other)
  Sender: FDA-Public Use
  Company Number: RO-ABBOTT-11P-135-0702545-00

PATIENT
  Age: 42 Year
  Sex: Female
  Weight: 100 kg

DRUGS (1)
  1. KLACID SR 500 MG TABLETS [Suspect]
     Indication: BRONCHITIS CHRONIC
     Route: 048
     Dates: start: 20110107, end: 20110114

REACTIONS (2)
  - ABORTION INDUCED [None]
  - RED BLOOD CELLS URINE POSITIVE [None]
